FAERS Safety Report 5158127-5 (Version None)
Quarter: 2006Q4

REPORT INFORMATION
  Report Type: 
  Country: None (occurrence: None)
  Receive Date: 20061117
  Receipt Date: 20061106
  Transmission Date: 20070319
  Serious: No
  Sender: FDA-Public Use
  Company Number: FR-2006-010645

PATIENT
  Age: 39 Year
  Sex: Female
  Weight: 52 kg

DRUGS (1)
  1. MIRENA [Suspect]
     Indication: CONTRACEPTION
     Dosage: 20 UG/DAY, CONT, INTRA-UTERINE
     Route: 015
     Dates: start: 20050701

REACTIONS (6)
  - AMENORRHOEA [None]
  - BREAST CANCER FEMALE [None]
  - BREAST ENLARGEMENT [None]
  - BREAST MICROCALCIFICATION [None]
  - BREAST PAIN [None]
  - FIBROCYSTIC BREAST DISEASE [None]
